FAERS Safety Report 7183333-8 (Version None)
Quarter: 2010Q4

REPORT INFORMATION
  Report Type: 
  Country: None (occurrence: None)
  Receive Date: 20101210
  Receipt Date: 20101124
  Transmission Date: 20110411
  Serious: Yes (Hospitalization, Disabling)
  Sender: FDA-Public Use
  Company Number: 2010MA000921

PATIENT
  Age: 61 Year
  Sex: Female
  Weight: 161.0269 kg

DRUGS (30)
  1. METOCLOPRAMIDE [Suspect]
     Dosage: 10 MG;TID;PO
     Route: 048
     Dates: start: 19911218, end: 20090401
  2. PROZAC [Concomitant]
  3. LEVOXYL [Concomitant]
  4. VERAPAMIL [Concomitant]
  5. LASIX [Concomitant]
  6. ENALAPRIL [Concomitant]
  7. NORFLEX [Concomitant]
  8. PREVACID [Concomitant]
  9. SINGULAIR [Concomitant]
  10. COMBIVENT [Concomitant]
  11. FLOVENT [Concomitant]
  12. SEREVENT [Concomitant]
  13. LORCET-HD [Concomitant]
  14. CALCIUM [Concomitant]
  15. CELEBREX [Concomitant]
  16. DIOVAN [Concomitant]
  17. ENALAPRIL [Concomitant]
  18. NORFLEX [Concomitant]
  19. ZANTAC [Concomitant]
  20. VITAMIN B COMPLEX [Concomitant]
  21. FOLIC ACID [Concomitant]
  22. ADVAIR [Concomitant]
  23. ALBUTEROL [Concomitant]
  24. SPIRIVA [Concomitant]
  25. ORPHENADRIN [Concomitant]
  26. LEVBID [Concomitant]
  27. PHENTERMINE [Concomitant]
  28. ETODOLAC [Concomitant]
  29. WELLBUTRIN XL [Concomitant]
  30. PREV MEDS [Concomitant]

REACTIONS (77)
  - ABDOMINAL PAIN [None]
  - ACTIVITIES OF DAILY LIVING IMPAIRED [None]
  - ANHEDONIA [None]
  - ANXIETY [None]
  - ARRHYTHMIA [None]
  - ARTHRITIS [None]
  - ASPIRATION [None]
  - ASTHENIA [None]
  - ASTHMA [None]
  - AZOTAEMIA [None]
  - BACK PAIN [None]
  - BLOOD CREATININE INCREASED [None]
  - BLOOD GLUCOSE INCREASED [None]
  - BLOOD POTASSIUM INCREASED [None]
  - BLOOD SODIUM DECREASED [None]
  - BLOOD UREA INCREASED [None]
  - CARDIAC MURMUR [None]
  - CARDIOMEGALY [None]
  - CARPAL TUNNEL SYNDROME [None]
  - CELLULITIS [None]
  - CHEST PAIN [None]
  - CHILLS [None]
  - CHRONIC OBSTRUCTIVE PULMONARY DISEASE [None]
  - COGWHEEL RIGIDITY [None]
  - CONJUNCTIVITIS [None]
  - CONSTIPATION [None]
  - DEFORMITY [None]
  - DIZZINESS [None]
  - DYSPNOEA [None]
  - ECONOMIC PROBLEM [None]
  - EMOTIONAL DISTRESS [None]
  - EXTRAPYRAMIDAL DISORDER [None]
  - FATIGUE [None]
  - GASTRIC POLYPS [None]
  - GASTRITIS [None]
  - GOITRE [None]
  - HEPATOMEGALY [None]
  - HYPERCHOLESTEROLAEMIA [None]
  - HYPERKALAEMIA [None]
  - HYPERTENSION [None]
  - HYPOTHYROIDISM [None]
  - INCORRECT DRUG ADMINISTRATION DURATION [None]
  - INJURY [None]
  - INSOMNIA [None]
  - IRON DEFICIENCY ANAEMIA [None]
  - LUNG NEOPLASM [None]
  - MENTAL DISORDER [None]
  - MITRAL VALVE PROLAPSE [None]
  - MOVEMENT DISORDER [None]
  - MUSCLE SPASMS [None]
  - NASOPHARYNGITIS [None]
  - NERVOUS SYSTEM DISORDER [None]
  - NIGHTMARE [None]
  - OBESITY [None]
  - OBSTRUCTION GASTRIC [None]
  - OEDEMA [None]
  - OSTEOARTHRITIS [None]
  - OVARIAN CYST [None]
  - PAIN [None]
  - PARAESTHESIA [None]
  - PARKINSON'S DISEASE [None]
  - PLATELET COUNT INCREASED [None]
  - PULMONARY HYPERTENSION [None]
  - REFLUX OESOPHAGITIS [None]
  - RENAL FAILURE [None]
  - RENAL FAILURE ACUTE [None]
  - RENAL FAILURE CHRONIC [None]
  - RHONCHI [None]
  - SLEEP APNOEA SYNDROME [None]
  - SYNCOPE [None]
  - TARDIVE DYSKINESIA [None]
  - THYROXINE INCREASED [None]
  - TREMOR [None]
  - UTERINE MASS [None]
  - UTERINE NEOPLASM [None]
  - VOMITING [None]
  - WHITE BLOOD CELL COUNT INCREASED [None]
